FAERS Safety Report 21980842 (Version 1)
Quarter: 2023Q1

REPORT INFORMATION
  Report Type: Spontaneous
  Country: PL (occurrence: PL)
  Receive Date: 20230211
  Receipt Date: 20230211
  Transmission Date: 20230418
  Serious: Yes (Death, Hospitalization, Other)
  Sender: FDA-Public Use
  Company Number: PL-GLAXOSMITHKLINE-PL2016GSK189935

PATIENT
  Age: 57 Year
  Sex: Female

DRUGS (4)
  1. AMOXICILLIN\CLAVULANIC ACID [Suspect]
     Active Substance: AMOXICILLIN\CLAVULANIC ACID
     Indication: Pneumonia
     Dosage: UNK
     Route: 065
     Dates: start: 201507
  2. AMIODARONE [Suspect]
     Active Substance: AMIODARONE
     Indication: Ventricular tachycardia
     Dosage: UNK
     Route: 065
     Dates: start: 201507
  3. LITHIUM CARBONATE [Suspect]
     Active Substance: LITHIUM CARBONATE
     Indication: Bipolar disorder
     Dosage: 4 DOSAGE FORM, ONCE A DAY (4 DF, QD0
     Route: 065
  4. CLOMIPRAMINE [Concomitant]
     Active Substance: CLOMIPRAMINE
     Indication: Bipolar disorder
     Dosage: 1 DOSAGE FORM, ONCE A DAY (1 DF, QD (SR))
     Route: 065

REACTIONS (29)
  - Cardiopulmonary failure [Fatal]
  - Renal cyst [Fatal]
  - Ventricular arrhythmia [Fatal]
  - Toxicity to various agents [Fatal]
  - Chronic kidney disease [Fatal]
  - Hepatic failure [Fatal]
  - Drug ineffective [Fatal]
  - Electrolyte imbalance [Fatal]
  - Condition aggravated [Fatal]
  - Accidental overdose [Fatal]
  - Psychomotor hyperactivity [Unknown]
  - Ventricular arrhythmia [Unknown]
  - Cachexia [Unknown]
  - Bradycardia [Recovered/Resolved]
  - Renal failure [Unknown]
  - Liver injury [Unknown]
  - Ventricular fibrillation [Unknown]
  - Ventricular tachycardia [Unknown]
  - Suspected suicide attempt [Unknown]
  - Pneumonia [Unknown]
  - Anxiety [Unknown]
  - Weight decreased [Unknown]
  - Dysarthria [Unknown]
  - Pyrexia [Unknown]
  - Abnormal behaviour [Unknown]
  - Hypernatraemia [Unknown]
  - Disease recurrence [Unknown]
  - Incoherent [Unknown]
  - Hypotension [Unknown]

NARRATIVE: CASE EVENT DATE: 20150701
